FAERS Safety Report 10192864 (Version 2)
Quarter: 2014Q2

REPORT INFORMATION
  Report Type: Report from Study
  Country: US (occurrence: US)
  Receive Date: 20140523
  Receipt Date: 20140523
  Transmission Date: 20141212
  Serious: Yes (Other)
  Sender: FDA-Public Use
  Company Number: US-PFIZER INC-2009268342

PATIENT
  Age: 53 Year
  Sex: Female
  Weight: 54.42 kg

DRUGS (5)
  1. SERTRALINE HCL [Suspect]
     Indication: DEPRESSION
     Dosage: 50 MG, 1X/DAY
     Route: 048
     Dates: start: 2006, end: 2006
  2. SERTRALINE HCL [Suspect]
     Indication: ANXIETY
     Dosage: UNK
  3. ATIVAN [Concomitant]
     Indication: SLEEP DISORDER
     Dosage: 1 MG, 1X/DAY
     Route: 048
  4. ADVAIR [Concomitant]
     Indication: ASTHMA
     Dosage: FLUTICASONE PROPIONATE 500 MCG/SALMETEROL 50 MCG, 2X/DAY
  5. CYCLOSPORINE [Concomitant]
     Indication: DRY EYE
     Dosage: 0.05 %, 2X/DAY

REACTIONS (7)
  - Suicidal ideation [Recovered/Resolved]
  - Mood swings [Unknown]
  - Insomnia [Unknown]
  - Nightmare [Unknown]
  - Tachyphrenia [Unknown]
  - Crying [Unknown]
  - Discomfort [Recovered/Resolved]
